FAERS Safety Report 8899433 (Version 1)
Quarter: 2012Q4

REPORT INFORMATION
  Report Type: 
  Country: JP (occurrence: JP)
  Receive Date: 20121109
  Receipt Date: 20121109
  Transmission Date: 20130627
  Serious: Yes (Other)
  Sender: FDA-Public Use
  Company Number: JP-ROCHE-1152493

PATIENT
  Age: 61 Year
  Sex: Male

DRUGS (3)
  1. CELLCEPT [Suspect]
     Indication: PROPHYLAXIS AGAINST TRANSPLANT REJECTION
     Dosage: Dosage is uncertain.
     Route: 048
  2. PREDNISOLONE [Concomitant]
     Indication: PROPHYLAXIS AGAINST TRANSPLANT REJECTION
     Dosage: Dosage is uncertain.
     Route: 065
  3. NEORAL [Concomitant]
     Indication: PROPHYLAXIS AGAINST TRANSPLANT REJECTION
     Dosage: Dosage is uncertain.
     Route: 065

REACTIONS (2)
  - Calculus bladder [Recovered/Resolved]
  - Hydronephrosis [Recovered/Resolved]
